FAERS Safety Report 18196027 (Version 1)
Quarter: 2020Q3

REPORT INFORMATION
  Report Type: Spontaneous
  Country: CA (occurrence: CA)
  Receive Date: 20200825
  Receipt Date: 20200825
  Transmission Date: 20201103
  Serious: Yes (Other)
  Sender: FDA-Public Use
  Company Number: CA-TEVA-2020-CA-1817498

PATIENT
  Age: 50 Year
  Sex: Female

DRUGS (7)
  1. SYNTHROID [Concomitant]
     Active Substance: LEVOTHYROXINE SODIUM
  2. TEVA?NAPROXEN [Suspect]
     Active Substance: NAPROXEN
     Indication: FRACTURE
     Dosage: 1000 MILLIGRAM DAILY;
  3. SINGULAIR [Concomitant]
     Active Substance: MONTELUKAST SODIUM
  4. YASMIN [Concomitant]
     Active Substance: DROSPIRENONE\ETHINYL ESTRADIOL
  5. TEVA?NAPROXEN [Suspect]
     Active Substance: NAPROXEN
     Indication: CONTUSION
  6. APO?NAPROXEN [Concomitant]
     Active Substance: NAPROXEN
  7. TRAZODONE [Concomitant]
     Active Substance: TRAZODONE HYDROCHLORIDE

REACTIONS (7)
  - Abdominal pain [Recovered/Resolved]
  - Dizziness [Recovered/Resolved]
  - Tinnitus [Recovered/Resolved]
  - Haematochezia [Recovered/Resolved]
  - Blood urine present [Recovered/Resolved]
  - Nausea [Recovered/Resolved]
  - Renal pain [Recovered/Resolved]
